APPROVED DRUG PRODUCT: NORGESIC FORTE
Active Ingredient: ASPIRIN; CAFFEINE; ORPHENADRINE CITRATE
Strength: 770MG;60MG;50MG **Federal Register determination that product was not discontinued or withdrawn for safety or effectiveness reasons**
Dosage Form/Route: TABLET;ORAL
Application: N013416 | Product #004
Applicant: BAUSCH HEALTH US LLC
Approved: Oct 27, 1982 | RLD: Yes | RS: No | Type: DISCN